FAERS Safety Report 11215775 (Version 1)
Quarter: 2015Q2

REPORT INFORMATION
  Report Type: Spontaneous
  Country: PT (occurrence: None)
  Receive Date: 20150622
  Receipt Date: 20150622
  Transmission Date: 20150821
  Serious: Yes (Hospitalization)
  Sender: FDA-Public Use
  Company Number: IPC201506-000386

PATIENT
  Age: 73 Year
  Sex: Male

DRUGS (1)
  1. WARFARIN (WARFARIN) (WARFARIN) [Suspect]
     Active Substance: WARFARIN

REACTIONS (10)
  - Prothrombin time prolonged [None]
  - Anaemia [None]
  - Activated partial thromboplastin time prolonged [None]
  - Ileus [None]
  - Abdominal pain [None]
  - Abdominal distension [None]
  - Haematemesis [None]
  - International normalised ratio increased [None]
  - Necrosis ischaemic [None]
  - Intestinal haematoma [None]
